FAERS Safety Report 10744226 (Version 2)
Quarter: 2015Q1

REPORT INFORMATION
  Report Type: Spontaneous
  Country: CN (occurrence: None)
  Receive Date: 20150126
  Receipt Date: 20150323
  Transmission Date: 20150721
  Serious: Yes (Hospitalization)
  Sender: FDA-Public Use
  Company Number: CN-2015VAL000051

PATIENT
  Age: 55 Year
  Sex: Male

DRUGS (1)
  1. LOTENSIN [Suspect]
     Active Substance: BENAZEPRIL HYDROCHLORIDE
     Indication: HYPERTENSION
     Route: 048
     Dates: start: 19990323, end: 20140630

REACTIONS (4)
  - Drug ineffective [None]
  - Product quality issue [None]
  - Choking [None]
  - Cerebral infarction [None]

NARRATIVE: CASE EVENT DATE: 20140629
